FAERS Safety Report 5127310-7 (Version None)
Quarter: 2006Q4

REPORT INFORMATION
  Report Type: 
  Country: None (occurrence: None)
  Receive Date: 20061013
  Receipt Date: 20061004
  Transmission Date: 20070319
  Serious: Yes (Hospitalization)
  Sender: FDA-Public Use
  Company Number: AU-ABBOTT-06P-008-0345970-00

PATIENT
  Sex: Female

DRUGS (7)
  1. HUMIRA [Suspect]
     Indication: DRUG USE FOR UNKNOWN INDICATION
     Route: 050
  2. OMEPRAZOLE [Concomitant]
     Indication: DRUG USE FOR UNKNOWN INDICATION
  3. PREDNISOLONE [Concomitant]
     Indication: DRUG USE FOR UNKNOWN INDICATION
  4. ACTILAX [Concomitant]
     Indication: DRUG USE FOR UNKNOWN INDICATION
  5. ATORVASTATIN CALCIUM [Concomitant]
     Indication: DRUG USE FOR UNKNOWN INDICATION
  6. IRBESARTAN [Concomitant]
     Indication: DRUG USE FOR UNKNOWN INDICATION
  7. ALENDRONATE SODIUM [Concomitant]
     Indication: DRUG USE FOR UNKNOWN INDICATION

REACTIONS (4)
  - OEDEMA PERIPHERAL [None]
  - PRURITUS [None]
  - RASH [None]
  - SWELLING FACE [None]
